FAERS Safety Report 21877428 (Version 3)
Quarter: 2023Q2

REPORT INFORMATION
  Report Type: Spontaneous
  Country: US (occurrence: US)
  Receive Date: 20230118
  Receipt Date: 20230509
  Transmission Date: 20230721
  Serious: No
  Sender: FDA-Public Use
  Company Number: US-BRISTOL-MYERS SQUIBB COMPANY-2023-007455

PATIENT
  Age: 71 Year
  Sex: Male

DRUGS (1)
  1. REVLIMID [Suspect]
     Active Substance: LENALIDOMIDE
     Indication: Plasma cell myeloma
     Dosage: FREQ: TAKE 1 WHOLE CAPSULE BY MOUTH W/WATER W/ OR W/O FOOD AT THE SAME TIME DAILY FOR 21 DAYS THEN 7
     Route: 048
     Dates: start: 20210805

REACTIONS (3)
  - Constipation [Unknown]
  - Product dose omission issue [Unknown]
  - Product distribution issue [Unknown]
